FAERS Safety Report 6306428-7 (Version None)
Quarter: 2009Q3

REPORT INFORMATION
  Report Type: 
  Country: None (occurrence: None)
  Receive Date: 20090812
  Receipt Date: 20090803
  Transmission Date: 20100115
  Serious: Yes (Hospitalization, Other)
  Sender: FDA-Public Use
  Company Number: FR-ELI_LILLY_AND_COMPANY-FR200904004511

PATIENT
  Age: 70 Year
  Sex: Female
  Weight: 59 kg

DRUGS (6)
  1. FORTEO [Suspect]
     Indication: OSTEOPOROSIS
     Dosage: 20 UG, DAILY (1/D)
     Route: 058
     Dates: start: 20080409, end: 20090301
  2. FORTEO [Suspect]
     Dosage: 20 UG, DAILY (1/D)
     Route: 058
     Dates: start: 20090619
  3. PREVISCAN [Concomitant]
     Indication: PHLEBITIS
     Dosage: UNK, UNKNOWN
     Route: 048
     Dates: start: 20080101
  4. OROCAL VITAMIN D [Concomitant]
     Dosage: UNK, UNKNOWN
     Route: 048
     Dates: start: 20050201
  5. LYRICA [Concomitant]
     Dosage: UNK, UNKNOWN
     Route: 048
  6. LEVOTHYROX [Concomitant]
     Indication: THYROID NEOPLASM
     Dosage: 50 MG, DAILY (1/D)
     Route: 048

REACTIONS (2)
  - CHOLELITHIASIS [None]
  - PAIN IN EXTREMITY [None]
